FAERS Safety Report 18341348 (Version 1)
Quarter: 2020Q4

REPORT INFORMATION
  Report Type: Spontaneous
  Country: DE (occurrence: DE)
  Receive Date: 20201003
  Receipt Date: 20201003
  Transmission Date: 20210113
  Serious: Yes (Other)
  Sender: FDA-Public Use
  Company Number: NVSC2020DE264061

PATIENT
  Age: 10 Year
  Sex: Male
  Weight: 26.7 kg

DRUGS (2)
  1. SOMATROPIN. [Suspect]
     Active Substance: SOMATROPIN
     Indication: GROWTH HORMONE DEFICIENCY
     Dosage: 0.6 MG, QD
     Route: 058
     Dates: start: 20200630
  2. L-THYROXINE [Concomitant]
     Active Substance: LEVOTHYROXINE
     Indication: PRODUCT USED FOR UNKNOWN INDICATION
     Dosage: 75 UG, QD (75MCG/DAY)
     Route: 065
     Dates: start: 2014

REACTIONS (1)
  - Epiphysiolysis [Unknown]

NARRATIVE: CASE EVENT DATE: 20200725
